FAERS Safety Report 16023855 (Version 1)
Quarter: 2019Q1

REPORT INFORMATION
  Report Type: Spontaneous
  Country: US (occurrence: US)
  Receive Date: 20190301
  Receipt Date: 20190301
  Transmission Date: 20190418
  Serious: Yes (Death)
  Sender: FDA-Public Use
  Company Number: US-LUNDBECK-DKLU2061142

PATIENT
  Age: 70 Year
  Sex: Male

DRUGS (1)
  1. NORTHERA [Suspect]
     Active Substance: DROXIDOPA
     Indication: POLYNEUROPATHY
     Route: 048
     Dates: start: 20141106

REACTIONS (1)
  - Death [Fatal]

NARRATIVE: CASE EVENT DATE: 20190129
